FAERS Safety Report 5279841-7 (Version None)
Quarter: 2007Q1

REPORT INFORMATION
  Report Type: 
  Country: None (occurrence: None)
  Receive Date: 20061218
  Receipt Date: 20060710
  Transmission Date: 20070707
  Serious: Yes (Other)
  Sender: FDA-Public Use
  Company Number: US200607001553

PATIENT
  Sex: Male

DRUGS (2)
  1. HUMULIN 70/30 [Suspect]
     Dosage: SEE IMAGE
     Dates: start: 19990101
  2. HUMULIN 70/30 [Suspect]
     Dosage: SEE IMAGE
     Dates: start: 19990101

REACTIONS (1)
  - SHOCK HYPOGLYCAEMIC [None]
